FAERS Safety Report 4598014-4 (Version None)
Quarter: 2005Q2

REPORT INFORMATION
  Report Type: 
  Country: None (occurrence: None)
  Receive Date: 20050204
  Receipt Date: 20040726
  Transmission Date: 20051028
  Serious: Yes (Hospitalization)
  Sender: FDA-Public Use
  Company Number: PHEH2004US08129

PATIENT
  Age: 41 Year
  Sex: Male

DRUGS (6)
  1. CLOZARIL [Suspect]
     Indication: SCHIZOAFFECTIVE DISORDER
     Dosage: 300 MG/DAY, ORAL
     Dates: start: 19960101, end: 20040711
  2. PROLIXIN [Suspect]
     Indication: SCHIZOAFFECTIVE DISORDER
     Dates: end: 20040711
  3. ATENOLOL [Concomitant]
  4. CALCIUM   (CALCIUM) [Concomitant]
  5. DEPAKOTE [Concomitant]
  6. PAXIL [Concomitant]

REACTIONS (5)
  - BLOOD CREATINE PHOSPHOKINASE INCREASED [None]
  - BLOOD PRESSURE DECREASED [None]
  - DIZZINESS [None]
  - FALL [None]
  - HEART RATE INCREASED [None]
